FAERS Safety Report 5599420-1 (Version None)
Quarter: 2008Q1

REPORT INFORMATION
  Report Type: 
  Country: None (occurrence: None)
  Receive Date: 20080122
  Receipt Date: 20080110
  Transmission Date: 20080703
  Serious: Yes (Disabling)
  Sender: FDA-Public Use
  Company Number: FR-PFIZER INC-2008002983

PATIENT
  Sex: Male

DRUGS (3)
  1. SOLU-MEDROL [Suspect]
     Indication: ANGIOEDEMA
     Route: 042
     Dates: start: 19961023, end: 19961023
  2. DEXAMETHASONE TAB [Suspect]
     Indication: ANGIOEDEMA
     Dosage: DAILY DOSE:8MG
     Route: 042
  3. PREDNISOLONE [Suspect]
     Route: 048
     Dates: start: 19961025, end: 19961103

REACTIONS (2)
  - BONE PAIN [None]
  - OSTEONECROSIS [None]
